FAERS Safety Report 26132340 (Version 1)
Quarter: 2025Q4

REPORT INFORMATION
  Report Type: Spontaneous
  Country: CN (occurrence: CN)
  Receive Date: 20251208
  Receipt Date: 20251208
  Transmission Date: 20260118
  Serious: Yes (Life-Threatening)
  Sender: FRESENIUS KABI
  Company Number: CN-FreseniusKabi-FK202516629

PATIENT
  Age: 45 Year
  Sex: Female
  Weight: 54 kg

DRUGS (20)
  1. PROPOFOL [Suspect]
     Active Substance: PROPOFOL
     Indication: Anaesthesia
     Dosage: ROA: PUMP INJECTION?FOA: INJECTION
     Dates: start: 20251113, end: 20251113
  2. PROPOFOL [Suspect]
     Active Substance: PROPOFOL
     Indication: Hysterectomy
  3. PROPOFOL [Suspect]
     Active Substance: PROPOFOL
     Indication: Salpingectomy
  4. PROPOFOL [Suspect]
     Active Substance: PROPOFOL
     Indication: Surgery
  5. PROPOFOL [Suspect]
     Active Substance: PROPOFOL
     Indication: Vaginal prolapse repair
  6. SUFENTANIL CITRATE [Suspect]
     Active Substance: SUFENTANIL CITRATE
     Indication: Anaesthesia
     Dosage: FOA: INJECTION
     Dates: start: 20251113, end: 20251113
  7. SUFENTANIL CITRATE [Suspect]
     Active Substance: SUFENTANIL CITRATE
     Indication: Hysterectomy
  8. SUFENTANIL CITRATE [Suspect]
     Active Substance: SUFENTANIL CITRATE
     Indication: Salpingectomy
  9. SUFENTANIL CITRATE [Suspect]
     Active Substance: SUFENTANIL CITRATE
     Indication: Surgery
  10. SUFENTANIL CITRATE [Suspect]
     Active Substance: SUFENTANIL CITRATE
     Indication: Vaginal prolapse repair
  11. REMIFENTANIL HYDROCHLORIDE [Suspect]
     Active Substance: REMIFENTANIL HYDROCHLORIDE
     Indication: Anaesthesia
     Dosage: FOA: POWDER FOR INJECTION
     Dates: start: 20251113, end: 20251113
  12. REMIFENTANIL HYDROCHLORIDE [Suspect]
     Active Substance: REMIFENTANIL HYDROCHLORIDE
     Indication: Hysterectomy
  13. REMIFENTANIL HYDROCHLORIDE [Suspect]
     Active Substance: REMIFENTANIL HYDROCHLORIDE
     Indication: Salpingectomy
  14. REMIFENTANIL HYDROCHLORIDE [Suspect]
     Active Substance: REMIFENTANIL HYDROCHLORIDE
     Indication: Surgery
  15. REMIFENTANIL HYDROCHLORIDE [Suspect]
     Active Substance: REMIFENTANIL HYDROCHLORIDE
     Indication: Vaginal prolapse repair
  16. ROCURONIUM BROMIDE [Suspect]
     Active Substance: ROCURONIUM BROMIDE
     Indication: Anaesthesia
     Dosage: FOA: INJECTION
     Dates: start: 20251113, end: 20251113
  17. ROCURONIUM BROMIDE [Suspect]
     Active Substance: ROCURONIUM BROMIDE
     Indication: Hysterectomy
  18. ROCURONIUM BROMIDE [Suspect]
     Active Substance: ROCURONIUM BROMIDE
     Indication: Salpingectomy
  19. ROCURONIUM BROMIDE [Suspect]
     Active Substance: ROCURONIUM BROMIDE
     Indication: Surgery
  20. ROCURONIUM BROMIDE [Suspect]
     Active Substance: ROCURONIUM BROMIDE
     Indication: Vaginal prolapse repair

REACTIONS (1)
  - Anaphylactic shock [Recovered/Resolved]

NARRATIVE: CASE EVENT DATE: 20251113
